FAERS Safety Report 26002539 (Version 2)
Quarter: 2025Q4

REPORT INFORMATION
  Report Type: Spontaneous
  Country: JP (occurrence: JP)
  Receive Date: 20251105
  Receipt Date: 20251121
  Transmission Date: 20260117
  Serious: Yes (Other)
  Sender: ALKEM
  Company Number: None

PATIENT
  Age: 65 Year
  Sex: Female

DRUGS (8)
  1. TACROLIMUS [Suspect]
     Active Substance: TACROLIMUS
     Indication: Prophylaxis against graft versus host disease
     Dosage: UNK (INFUSION)
     Route: 065
  2. TACROLIMUS [Suspect]
     Active Substance: TACROLIMUS
     Dosage: UNK (TAPERED)
     Route: 065
  3. ACETAMINOPHEN [Suspect]
     Active Substance: ACETAMINOPHEN
     Indication: Pyrexia
     Dosage: UNK
     Route: 065
  4. BUSULFAN [Suspect]
     Active Substance: BUSULFAN
     Indication: Bone marrow conditioning regimen
     Dosage: 9.6 MILLIGRAM/SQ. METER
     Route: 042
  5. FLUDARABINE [Concomitant]
     Active Substance: FLUDARABINE PHOSPHATE
     Indication: Bone marrow conditioning regimen
     Dosage: 180 MILLIGRAM/SQ. METER
     Route: 065
  6. METHOTREXATE [Concomitant]
     Active Substance: METHOTREXATE
     Indication: Prophylaxis against graft versus host disease
     Dosage: 15 MILLIGRAM/SQ. METER
     Route: 065
  7. METHOTREXATE [Concomitant]
     Active Substance: METHOTREXATE
     Dosage: 10 MILLIGRAM/SQ. METER
     Route: 065
  8. Rabbit Anti-Human Thymocyte Globulin [Concomitant]
     Indication: Prophylaxis against graft versus host disease
     Dosage: 2.5 MILLIGRAM/KILOGRAM
     Route: 065

REACTIONS (6)
  - Coagulation factor decreased [Recovered/Resolved]
  - Antiphospholipid antibodies [Recovered/Resolved]
  - Activated partial thromboplastin time prolonged [Recovered/Resolved]
  - Adenoviral haemorrhagic cystitis [Recovered/Resolved]
  - Cytomegalovirus infection [Unknown]
  - Therapy non-responder [Unknown]
